FAERS Safety Report 12331366 (Version 6)
Quarter: 2017Q2

REPORT INFORMATION
  Report Type: Spontaneous
  Country: US (occurrence: US)
  Receive Date: 20160504
  Receipt Date: 20170526
  Transmission Date: 20170830
  Serious: Yes (Hospitalization, Other)
  Sender: FDA-Public Use
  Company Number: US-009507513-1605USA001209

PATIENT
  Sex: Female
  Weight: 108.84 kg

DRUGS (1)
  1. NUVARING [Suspect]
     Active Substance: ETHINYL ESTRADIOL\ETONOGESTREL
     Indication: CONTRACEPTION
     Dosage: MONTHLY- INSERT 1 RING VAGINALLY, REMOVE IN 21 DAYS, RE-INSERT NEW RING IN 7 DAYS
     Route: 067
     Dates: start: 20120530, end: 20140506

REACTIONS (7)
  - Infection [Unknown]
  - Swelling [Unknown]
  - Pulmonary embolism [Recovered/Resolved]
  - Road traffic accident [Unknown]
  - Joint dislocation [Unknown]
  - Weight increased [Unknown]
  - Obesity [Unknown]

NARRATIVE: CASE EVENT DATE: 201208
